FAERS Safety Report 7266934-8 (Version None)
Quarter: 2011Q1

REPORT INFORMATION
  Report Type: 
  Country: None (occurrence: None)
  Receive Date: 20110201
  Receipt Date: 20110128
  Transmission Date: 20110831
  Serious: Yes (Other)
  Sender: FDA-Public Use
  Company Number: US-BAYER-2011-009797

PATIENT
  Sex: Male

DRUGS (2)
  1. CONTRAST MEDIA [Concomitant]
     Indication: COMPUTERISED TOMOGRAM ABDOMEN
     Dosage: UNK
     Route: 048
     Dates: start: 20101223, end: 20101223
  2. ULTRAVIST 150 [Suspect]
     Indication: COMPUTERISED TOMOGRAM
     Dosage: 100 ML, UNK
     Route: 042
     Dates: start: 20101223, end: 20101223

REACTIONS (5)
  - SWELLING FACE [None]
  - URTICARIA [None]
  - CONTRAST MEDIA REACTION [None]
  - DYSPNOEA [None]
  - PRURITUS [None]
